FAERS Safety Report 16260705 (Version 8)
Quarter: 2019Q3

REPORT INFORMATION
  Report Type: Report from Study
  Country: US (occurrence: US)
  Receive Date: 20190501
  Receipt Date: 20190917
  Transmission Date: 20191004
  Serious: Yes (Death, Hospitalization, Other)
  Sender: FDA-Public Use
  Company Number: US-CLOVIS ONCOLOGY-CLO-2019-000724

PATIENT
  Age: 71 Year
  Sex: Female

DRUGS (3)
  1. RUBRACA [Suspect]
     Active Substance: RUCAPARIB CAMSYLATE
     Dosage: 300 MG, BID
     Route: 048
     Dates: start: 201903
  2. RUBRACA [Suspect]
     Active Substance: RUCAPARIB CAMSYLATE
     Dosage: 600 MG, BID
     Route: 048
     Dates: start: 20190316, end: 20190723
  3. RUBRACA [Suspect]
     Active Substance: RUCAPARIB CAMSYLATE
     Indication: OVARIAN CANCER
     Dosage: 600 MG, BID
     Route: 048
     Dates: start: 20190410

REACTIONS (21)
  - Neoplasm malignant [Unknown]
  - Tumour marker increased [Unknown]
  - Hypertension [Not Recovered/Not Resolved]
  - Muscular weakness [Unknown]
  - Sinusitis [Unknown]
  - Dyspnoea [Recovering/Resolving]
  - Cough [Unknown]
  - Weight decreased [Unknown]
  - Pyrexia [Recovering/Resolving]
  - Malignant neoplasm progression [Fatal]
  - Asthenia [Not Recovered/Not Resolved]
  - Dehydration [Unknown]
  - Renal function test abnormal [Not Recovered/Not Resolved]
  - Thrombosis [Unknown]
  - Urinary tract infection [Recovered/Resolved]
  - Clostridium difficile colitis [Unknown]
  - Nephropathy [Unknown]
  - Pneumonia [Unknown]
  - Pleural effusion [Recovered/Resolved]
  - Fatigue [Not Recovered/Not Resolved]
  - Chills [Recovered/Resolved]

NARRATIVE: CASE EVENT DATE: 2019
